FAERS Safety Report 8119186-0 (Version None)
Quarter: 2012Q1

REPORT INFORMATION
  Report Type: 
  Country: None (occurrence: None)
  Receive Date: 20120207
  Receipt Date: 20120123
  Transmission Date: 20120608
  Serious: Yes (Hospitalization)
  Sender: FDA-Public Use
  Company Number: ZA-JUTA GMBH-2012-01385

PATIENT
  Sex: Female

DRUGS (3)
  1. PRITOR                             /01102601/ [Concomitant]
     Indication: BLOOD PRESSURE
     Route: 065
  2. METFORMIN HCL [Suspect]
     Indication: PRODUCT USED FOR UNKNOWN INDICATION
     Dosage: 500MG, UNK
     Route: 065
  3. CARLOC [Concomitant]
     Indication: BLOOD PRESSURE
     Route: 065

REACTIONS (1)
  - BLOOD PRESSURE INCREASED [None]
